FAERS Safety Report 18629017 (Version 1)
Quarter: 2020Q4

REPORT INFORMATION
  Report Type: Spontaneous
  Country: US (occurrence: US)
  Receive Date: 20201217
  Receipt Date: 20201217
  Transmission Date: 20210114
  Serious: Yes (Other)
  Sender: FDA-Public Use
  Company Number: US-PFIZER INC-2020498474

PATIENT

DRUGS (1)
  1. AMLODIPINE BESILATE [Suspect]
     Active Substance: AMLODIPINE BESYLATE
     Indication: BLOOD PRESSURE MANAGEMENT
     Dosage: 1 MG, DAILY [AMLODIPINE BESYLATE 0.5 MG/I TAKE TWO A DAY ]

REACTIONS (3)
  - Psoriasis [Unknown]
  - Arthritis [Unknown]
  - Autoimmune disorder [Unknown]
